FAERS Safety Report 6092781-9 (Version None)
Quarter: 2009Q1

REPORT INFORMATION
  Report Type: 
  Country: None (occurrence: None)
  Receive Date: 20090225
  Receipt Date: 20090223
  Transmission Date: 20090719
  Serious: Yes (Hospitalization)
  Sender: FDA-Public Use
  Company Number: US-RB-006647-08

PATIENT
  Age: 52 Year
  Sex: Female

DRUGS (8)
  1. SUBOXONE [Suspect]
     Route: 060
     Dates: start: 20080903
  2. BACLOFEN [Concomitant]
     Indication: MUSCLE SPASTICITY
     Dosage: INKNOWN DOSE
  3. ENBREL [Concomitant]
     Dosage: UNKNOWN DOSE
  4. AMITRIPTYLINE [Concomitant]
     Indication: FIBROMYALGIA
     Dosage: UNKNOWN DOSE
  5. ATENOL [Concomitant]
     Indication: HEART RATE
     Dosage: UNKNOWN DOSE
  6. ZANAFLEX [Concomitant]
     Indication: MUSCLE SPASTICITY
     Dosage: UNKNOWN DOSE
  7. PROZAC [Concomitant]
     Indication: DEPRESSION
     Dosage: UNKNOWN DOSE
  8. CYMBALTA [Concomitant]
     Indication: DEPRESSION
     Dosage: UNKNOWN DOSE

REACTIONS (3)
  - ANXIETY [None]
  - CONVULSION [None]
  - WITHDRAWAL SYNDROME [None]
